FAERS Safety Report 7071036-X (Version None)
Quarter: 2010Q4

REPORT INFORMATION
  Report Type: 
  Country: None (occurrence: None)
  Receive Date: 20101029
  Receipt Date: 20101020
  Transmission Date: 20110411
  Serious: Yes (Other)
  Sender: FDA-Public Use
  Company Number: US-PFIZER INC-2010133922

PATIENT
  Sex: Female

DRUGS (1)
  1. CHANTIX [Suspect]
     Dosage: UNK
     Dates: start: 20081101

REACTIONS (4)
  - ANXIETY [None]
  - DEPRESSION [None]
  - LOSS OF CONSCIOUSNESS [None]
  - MENTAL DISORDER [None]
